FAERS Safety Report 23833997 (Version 2)
Quarter: 2024Q2

REPORT INFORMATION
  Report Type: Spontaneous
  Country: US (occurrence: None)
  Receive Date: 20240509
  Receipt Date: 20240528
  Transmission Date: 20240716
  Serious: Yes (Death)
  Sender: FDA-Public Use
  Company Number: US-USWM, LLC-UWM202404-000032

PATIENT
  Age: 10 Year
  Sex: Male

DRUGS (11)
  1. IWILFIN [Suspect]
     Active Substance: EFLORNITHINE HYDROCHLORIDE
     Indication: Product used for unknown indication
     Route: 048
     Dates: start: 20240202
  2. ETOPOSIDE [Concomitant]
     Active Substance: ETOPOSIDE
     Dosage: NOT PROVIDED
  3. DRONABINOL [Concomitant]
     Active Substance: DRONABINOL
     Dosage: NOT PROVIDED
  4. SCOPOLAMINE [Concomitant]
     Active Substance: SCOPOLAMINE
     Dosage: NOT PROVIDED
     Route: 062
  5. LACTULOSE [Concomitant]
     Active Substance: LACTULOSE
     Dosage: 10G/15ML
  6. KEPPRA [Concomitant]
     Active Substance: LEVETIRACETAM
     Dosage: NOT PROVIDED
  7. METOCLOPRAMIDE [Concomitant]
     Active Substance: METOCLOPRAMIDE
     Dosage: 5MG
  8. METHADONE [Concomitant]
     Active Substance: METHADONE HYDROCHLORIDE
     Dosage: NOT PROVIDED
  9. MAGNESIUM OXIDE [Concomitant]
     Active Substance: MAGNESIUM OXIDE
     Dosage: NOT PROVIDED
  10. PEPCID [Concomitant]
     Active Substance: FAMOTIDINE
     Dosage: 20MG
  11. DEXAMETHASONE [Concomitant]
     Active Substance: DEXAMETHASONE
     Dosage: 6MG

REACTIONS (2)
  - Neuroblastoma [Fatal]
  - Disease progression [Fatal]

NARRATIVE: CASE EVENT DATE: 20240411
